FAERS Safety Report 14033572 (Version 1)
Quarter: 2017Q4

REPORT INFORMATION
  Report Type: Spontaneous
  Country: US (occurrence: US)
  Receive Date: 20171003
  Receipt Date: 20171003
  Transmission Date: 20180321
  Serious: No
  Sender: FDA-Public Use
  Company Number: US-DRREDDYS-USA/USA/17/0086760

PATIENT
  Age: 32 Year
  Sex: Female
  Weight: 62.1 kg

DRUGS (8)
  1. INOTUZUMAB OZOGAMICIN [Concomitant]
     Active Substance: INOTUZUMAB OZOGAMICIN
     Route: 042
     Dates: start: 20161102
  2. AUGMENTIN [Suspect]
     Active Substance: AMOXICILLIN\CLAVULANATE POTASSIUM
     Indication: FEBRILE NEUTROPENIA
     Route: 048
     Dates: start: 20161115, end: 20161204
  3. AUGMENTIN [Suspect]
     Active Substance: AMOXICILLIN\CLAVULANATE POTASSIUM
     Indication: OTITIS EXTERNA
     Route: 048
     Dates: start: 20161224, end: 20170102
  4. POTASSIUM CHLORIDE. [Concomitant]
     Active Substance: POTASSIUM CHLORIDE
     Route: 042
     Dates: start: 20170102, end: 20170102
  5. AUGMENTIN [Suspect]
     Active Substance: AMOXICILLIN\CLAVULANATE POTASSIUM
     Indication: NEUTROPENIC SEPSIS
  6. POTASSIUM CHLORIDE. [Concomitant]
     Active Substance: POTASSIUM CHLORIDE
     Indication: HYPOKALAEMIA
     Dates: start: 20161111, end: 20161112
  7. INOTUZUMAB OZOGAMICIN [Concomitant]
     Active Substance: INOTUZUMAB OZOGAMICIN
     Indication: ACUTE LYMPHOCYTIC LEUKAEMIA
     Route: 042
  8. ACYCLOVIR. [Concomitant]
     Active Substance: ACYCLOVIR
     Indication: SKIN ULCER
     Route: 048
     Dates: start: 20161212, end: 20170102

REACTIONS (3)
  - Aspartate aminotransferase increased [Unknown]
  - Diarrhoea [Recovering/Resolving]
  - Mouth ulceration [Unknown]

NARRATIVE: CASE EVENT DATE: 20161121
